FAERS Safety Report 9935007 (Version 1)
Quarter: 2014Q1

REPORT INFORMATION
  Report Type: Spontaneous
  Country: CL (occurrence: CL)
  Receive Date: 20140228
  Receipt Date: 20140228
  Transmission Date: 20141002
  Serious: Yes (Other)
  Sender: FDA-Public Use
  Company Number: CL-PFIZER INC-2014053703

PATIENT
  Age: 85 Year
  Sex: Female

DRUGS (5)
  1. XALATAN [Suspect]
     Indication: GLAUCOMA
     Dosage: 2 OR 3 DROPS A DAY
     Route: 047
     Dates: start: 2012
  2. LOSARTAN [Concomitant]
  3. FLUOXETINE [Concomitant]
  4. ALPHAGAN [Concomitant]
  5. AZOPT [Concomitant]

REACTIONS (4)
  - Lacrimal disorder [Unknown]
  - Memory impairment [Not Recovered/Not Resolved]
  - Eye pain [Unknown]
  - Inappropriate schedule of drug administration [Not Recovered/Not Resolved]
